FAERS Safety Report 8523832-7 (Version None)
Quarter: 2012Q3

REPORT INFORMATION
  Report Type: 
  Country: None (occurrence: None)
  Receive Date: 20120720
  Receipt Date: 20120713
  Transmission Date: 20120928
  Serious: Yes (Death)
  Sender: FDA-Public Use
  Company Number: US-PFIZER INC-2012170644

PATIENT
  Sex: Male

DRUGS (1)
  1. VFEND [Suspect]
     Indication: LEUKAEMIA
     Dosage: 300 MG, 2X/DAY
     Dates: start: 20111118

REACTIONS (2)
  - DISEASE PROGRESSION [None]
  - LEUKAEMIA [None]
